FAERS Safety Report 12712458 (Version 5)
Quarter: 2016Q4

REPORT INFORMATION
  Report Type: Report from Study
  Country: AU (occurrence: AU)
  Receive Date: 20160902
  Receipt Date: 20161205
  Transmission Date: 20170207
  Serious: Yes (Other)
  Sender: FDA-Public Use
  Company Number: AU-UNITED THERAPEUTICS-UNT-2016-013644

PATIENT
  Age: 69 Year
  Sex: Female
  Weight: 62.2 kg

DRUGS (15)
  1. ATORVASTATIN [Concomitant]
     Active Substance: ATORVASTATIN
     Indication: PRE-EXISTING DISEASE
     Dosage: 20 MG, TOTAL DAILY DOSE
     Dates: start: 2006
  2. UT-15C SR [Suspect]
     Active Substance: TREPROSTINIL DIOLAMINE
     Dosage: UNK
  3. FRUSEMIDE                          /00032601/ [Concomitant]
     Active Substance: FUROSEMIDE
     Indication: PULMONARY ARTERIAL HYPERTENSION
     Dosage: 160 MG, TOTAL DAILY DOSE
     Dates: start: 20160722, end: 20160722
  4. PROLIA [Concomitant]
     Active Substance: DENOSUMAB
     Indication: PRE-EXISTING DISEASE
     Dosage: 60 MG, TOTAL DAILY DOSE
     Dates: start: 2014
  5. UT-15C SR [Suspect]
     Active Substance: TREPROSTINIL DIOLAMINE
     Indication: PULMONARY ARTERIAL HYPERTENSION
     Dosage: 1.625 MG, TID
     Route: 048
     Dates: start: 20160803, end: 20160826
  6. WARFARIN [Concomitant]
     Active Substance: WARFARIN
     Indication: ATRIAL FIBRILLATION
     Dosage: 3 MG, TOTAL DAILY DOSE
     Dates: start: 2006
  7. BISOPROLOL [Concomitant]
     Active Substance: BISOPROLOL
     Indication: MYOCARDIAL INFARCTION
     Dosage: 5 MG, TOTAL DAILY DOSE
     Dates: start: 2006
  8. UT-15C SR [Suspect]
     Active Substance: TREPROSTINIL DIOLAMINE
     Dosage: UNK
  9. COVERSYL                           /00790702/ [Concomitant]
     Active Substance: PERINDOPRIL
     Indication: HYPERTENSION
     Dosage: 2.5 MG, TOTAL DAILY DOSE
     Dates: start: 2000, end: 20160809
  10. ZYLOPRIM [Concomitant]
     Active Substance: ALLOPURINOL
     Indication: PRE-EXISTING DISEASE
     Dosage: 100 MG, TOTAL DAILY DOSE
     Dates: start: 2006, end: 20160812
  11. CALCITROL                          /00508501/ [Concomitant]
     Active Substance: CALCIUM CARBONATE\ERGOCALCIFEROL\RETINOL
     Indication: PRE-EXISTING DISEASE
     Dosage: 100 MCG, TOTAL DAILY DOSE
     Dates: start: 201502
  12. BOSENTAN. [Concomitant]
     Active Substance: BOSENTAN
     Indication: PULMONARY HYPERTENSION
     Dosage: 250 MG, TOTAL DAILY DOSE
     Dates: start: 20120910
  13. UT-15C SR [Suspect]
     Active Substance: TREPROSTINIL DIOLAMINE
     Dosage: UNK
     Route: 048
     Dates: start: 20160511
  14. SILDENAFIL. [Suspect]
     Active Substance: SILDENAFIL
     Indication: PULMONARY HYPERTENSION
     Dosage: 75 MG, TOTAL DAILY DOSE
     Dates: start: 20160511, end: 20160822
  15. UT-15C SR [Suspect]
     Active Substance: TREPROSTINIL DIOLAMINE
     Dosage: UNK

REACTIONS (1)
  - Rash [Recovered/Resolved]

NARRATIVE: CASE EVENT DATE: 20160804
